FAERS Safety Report 21163884 (Version 1)
Quarter: 2022Q3

REPORT INFORMATION
  Report Type: Report from Study
  Country: GB (occurrence: None)
  Receive Date: 20220803
  Receipt Date: 20220803
  Transmission Date: 20221027
  Serious: Yes (Other)
  Sender: FDA-Public Use
  Company Number: GB-Merck Healthcare KGaA-9340098

PATIENT
  Sex: Female

DRUGS (2)
  1. REBIF [Suspect]
     Active Substance: INTERFERON BETA-1A
     Indication: Multiple sclerosis
     Dosage: FOR TWO WEEKS
     Route: 058
  2. REBIF [Suspect]
     Active Substance: INTERFERON BETA-1A
     Dosage: FOR TWO WEEKS
     Route: 058

REACTIONS (4)
  - Caesarean section [Recovered/Resolved]
  - Breast feeding [Not Recovered/Not Resolved]
  - Live birth [Recovered/Resolved]
  - Maternal exposure during pregnancy [Recovered/Resolved]
